FAERS Safety Report 14343394 (Version 1)
Quarter: 2018Q1

REPORT INFORMATION
  Report Type: Spontaneous
  Country: US (occurrence: US)
  Receive Date: 20180101
  Receipt Date: 20180101
  Transmission Date: 20180509
  Serious: Yes (Disabling, Other)
  Sender: FDA-Public Use
  Company Number: None

PATIENT
  Age: 6 Year
  Sex: Female
  Weight: 24.3 kg

DRUGS (3)
  1. BUDESINODE [Concomitant]
  2. TAMIFLU [Suspect]
     Active Substance: OSELTAMIVIR PHOSPHATE
     Indication: INFLUENZA
     Dosage: ?          QUANTITY:1 TEASPOON(S);?
     Route: 048
     Dates: start: 20171215, end: 20171217
  3. ALBUTEROL. [Concomitant]
     Active Substance: ALBUTEROL

REACTIONS (8)
  - Screaming [None]
  - Crying [None]
  - Daydreaming [None]
  - Fear [None]
  - Emotional disorder [None]
  - Abnormal behaviour [None]
  - Decreased interest [None]
  - Insomnia [None]

NARRATIVE: CASE EVENT DATE: 20171215
